FAERS Safety Report 5585805-6 (Version None)
Quarter: 2008Q1

REPORT INFORMATION
  Report Type: 
  Country: None (occurrence: None)
  Receive Date: 20080109
  Receipt Date: 20070706
  Transmission Date: 20080703
  Serious: Yes (Other)
  Sender: FDA-Public Use
  Company Number: SE-RANBAXY-2007RR-10248

PATIENT

DRUGS (3)
  1. DICLOFENAC SODIUM [Suspect]
     Indication: CHOLELITHIASIS
     Dosage: 50 MG, TID
     Route: 048
  2. DICLOFENAC SODIUM [Suspect]
     Indication: ABDOMINAL PAIN
     Route: 054
  3. METFORMIN BASICS 1000MG [Suspect]
     Dosage: 1 G, TID

REACTIONS (1)
  - METABOLIC ACIDOSIS [None]
